FAERS Safety Report 9509329 (Version 2)
Quarter: 2014Q3

REPORT INFORMATION
  Report Type: Spontaneous
  Country: US (occurrence: US)
  Receive Date: 20130909
  Receipt Date: 20140908
  Transmission Date: 20150326
  Serious: No
  Sender: FDA-Public Use
  Company Number: US-BRISTOL-MYERS SQUIBB COMPANY-19001395

PATIENT
  Age: 55 Year
  Sex: Female
  Weight: 59.86 kg

DRUGS (5)
  1. PRIMIDONE. [Concomitant]
     Active Substance: PRIMIDONE
  2. CARBAMAZEPINE. [Concomitant]
     Active Substance: CARBAMAZEPINE
     Dosage: 2 TABLETS IN THE MORNING, 2 TABLETS IN THE AFTERNOON, AND 2 TABLETS IN THE EVENING
  3. CLOBAZAM [Concomitant]
     Active Substance: CLOBAZAM
     Dosage: 4 TABLETS IN THE MORNING AND 4 TABLETS AT BEDTIME
  4. ABILIFY [Suspect]
     Active Substance: ARIPIPRAZOLE
     Indication: BIPOLAR DISORDER
     Dosage: 5MG FROM MAR2006/REDUCED TO 2.5MG ON 6JU13/DR ADVISED TO TAKE 10MG
     Dates: start: 200603
  5. ABILIFY [Suspect]
     Active Substance: ARIPIPRAZOLE
     Indication: SCHIZOPHRENIA
     Dosage: 5MG FROM MAR2006/REDUCED TO 2.5MG ON 6JU13/DR ADVISED TO TAKE 10MG
     Dates: start: 200603

REACTIONS (5)
  - Drug administration error [Unknown]
  - Fatigue [Unknown]
  - Confusional state [Unknown]
  - Malaise [Unknown]
  - Weight fluctuation [Unknown]

NARRATIVE: CASE EVENT DATE: 20130606
